FAERS Safety Report 21739196 (Version 1)
Quarter: 2022Q4

REPORT INFORMATION
  Report Type: Report from Study
  Country: DE (occurrence: DE)
  Receive Date: 20221216
  Receipt Date: 20221216
  Transmission Date: 20230113
  Serious: Yes (Hospitalization, Other)
  Sender: FDA-Public Use
  Company Number: DE-Accord-292041

PATIENT
  Age: 5 Year
  Sex: Male

DRUGS (7)
  1. ETOPOSIDE [Suspect]
     Active Substance: ETOPOSIDE
     Indication: Acute myeloid leukaemia
     Route: 042
  2. METHOTREXATE [Suspect]
     Active Substance: METHOTREXATE
     Indication: Acute myeloid leukaemia
     Route: 037
  3. CYTARABINE [Suspect]
     Active Substance: CYTARABINE
     Indication: Acute myeloid leukaemia
     Dosage: 20 AND 40 MG/M2, THEN CONTINUOUS INFUSION OF 100 MG/M2 /24 H FOR 48 H
  4. PREDNISOLONE [Suspect]
     Active Substance: PREDNISOLONE
     Indication: Acute myeloid leukaemia
     Route: 037
  5. SORAFENIB [Suspect]
     Active Substance: SORAFENIB
     Indication: Acute myeloid leukaemia
     Dosage: FOR 72 H-100 MG/12 H FOR 48 H FOLLOWED BY 200 MG/24 H
  6. DAUNORUBICIN [Suspect]
     Active Substance: DAUNORUBICIN
     Indication: Acute myeloid leukaemia
     Route: 042
  7. CYTARABINE [Suspect]
     Active Substance: CYTARABINE
     Indication: Acute myeloid leukaemia
     Route: 042

REACTIONS (7)
  - Anaemia [Unknown]
  - Thrombocytopenia [Unknown]
  - Influenza [Unknown]
  - Hypocalcaemia [Unknown]
  - Hyperphosphataemia [Unknown]
  - Blood potassium increased [Unknown]
  - Blood lactate dehydrogenase decreased [Unknown]
